FAERS Safety Report 7675069-1 (Version None)
Quarter: 2011Q3

REPORT INFORMATION
  Report Type: 
  Country: None (occurrence: None)
  Receive Date: 20110810
  Receipt Date: 20110804
  Transmission Date: 20111222
  Serious: Yes (Other)
  Sender: FDA-Public Use
  Company Number: BR-MERCK-1108BRA00039

PATIENT
  Age: 55 Year
  Sex: Male
  Weight: 70 kg

DRUGS (1)
  1. CANCIDAS [Suspect]
     Indication: INFECTION PROPHYLAXIS
     Route: 051
     Dates: start: 20110803, end: 20110803

REACTIONS (4)
  - MALAISE [None]
  - TREMOR [None]
  - DYSPNOEA [None]
  - TACHYCARDIA [None]
